FAERS Safety Report 12772774 (Version 1)
Quarter: 2016Q3

REPORT INFORMATION
  Report Type: Spontaneous
  Country: IN (occurrence: IN)
  Receive Date: 20160922
  Receipt Date: 20160922
  Transmission Date: 20161109
  Serious: Yes (Other)
  Sender: FDA-Public Use
  Company Number: IN-ASTRAZENECA-2016SE99691

PATIENT
  Age: 60 Year
  Sex: Female

DRUGS (2)
  1. BRILINTA [Suspect]
     Active Substance: TICAGRELOR
     Route: 048
  2. ASPIRIN. [Interacting]
     Active Substance: ASPIRIN
     Route: 065

REACTIONS (2)
  - Drug interaction [Unknown]
  - Cerebrovascular accident [Unknown]
